FAERS Safety Report 5826781-8 (Version None)
Quarter: 2008Q3

REPORT INFORMATION
  Report Type: 
  Country: None (occurrence: None)
  Receive Date: 20080728
  Receipt Date: 20080728
  Transmission Date: 20090109
  Serious: Yes (Hospitalization)
  Sender: FDA-Public Use
  Company Number: None

PATIENT
  Age: 49 Year
  Sex: Female
  Weight: 88.4514 kg

DRUGS (1)
  1. AMITIZA [Suspect]
     Indication: CONSTIPATION
     Dosage: 1 GEL CAP TWICE A DAY PO
     Route: 048
     Dates: start: 20080721, end: 20080725

REACTIONS (3)
  - ABDOMINAL PAIN [None]
  - MIDDLE INSOMNIA [None]
  - VOMITING [None]
